FAERS Safety Report 4734018-6 (Version None)
Quarter: 2005Q3

REPORT INFORMATION
  Report Type: 
  Country: None (occurrence: None)
  Receive Date: 20050721
  Receipt Date: 20050510
  Transmission Date: 20060218
  Serious: No
  Sender: FDA-Public Use
  Company Number: 2005SP000660

PATIENT
  Age: 34 Year
  Sex: Female
  Weight: 46.7205 kg

DRUGS (3)
  1. LUNESTA [Suspect]
     Dosage: 1 MG;HS;ORAL, 3 MG;HS;ORAL
     Route: 048
     Dates: start: 20050506, end: 20050506
  2. LUNESTA [Suspect]
     Dosage: 1 MG;HS;ORAL, 3 MG;HS;ORAL
     Route: 048
     Dates: start: 20050510
  3. LUNESTA [Suspect]

REACTIONS (2)
  - DYSGEUSIA [None]
  - MIDDLE INSOMNIA [None]
